FAERS Safety Report 11763206 (Version 1)
Quarter: 2015Q4

REPORT INFORMATION
  Report Type: Spontaneous
  Country: US (occurrence: US)
  Receive Date: 20151120
  Receipt Date: 20151120
  Transmission Date: 20160304
  Serious: Yes (Other)
  Sender: FDA-Public Use
  Company Number: US-ELI_LILLY_AND_COMPANY-US201303002270

PATIENT
  Sex: Female

DRUGS (5)
  1. LYRICA [Concomitant]
     Active Substance: PREGABALIN
  2. FUROSEMIDE. [Concomitant]
     Active Substance: FUROSEMIDE
  3. CELEBREX [Concomitant]
     Active Substance: CELECOXIB
  4. CYMBALTA [Concomitant]
     Active Substance: DULOXETINE HYDROCHLORIDE
  5. FORTEO [Suspect]
     Active Substance: TERIPARATIDE
     Indication: OSTEOPOROSIS
     Dosage: UNK
     Dates: start: 20130228, end: 20130306

REACTIONS (6)
  - Sleep disorder [Recovered/Resolved]
  - Feeling abnormal [Recovered/Resolved]
  - Abdominal distension [Recovered/Resolved]
  - Dysphagia [Recovered/Resolved]
  - Pharyngeal oedema [Recovered/Resolved]
  - Depressed mood [Recovered/Resolved]
